FAERS Safety Report 13662142 (Version 1)
Quarter: 2017Q2

REPORT INFORMATION
  Report Type: Report from Study
  Country: US (occurrence: US)
  Receive Date: 20170616
  Receipt Date: 20170616
  Transmission Date: 20170830
  Serious: Yes (Hospitalization, Other)
  Sender: FDA-Public Use
  Company Number: US-BRISTOL-MYERS SQUIBB COMPANY-BMS-2017-051971

PATIENT
  Age: 38 Year
  Sex: Female
  Weight: 78.7 kg

DRUGS (2)
  1. CISPLATIN. [Suspect]
     Active Substance: CISPLATIN
     Indication: PRODUCT USED FOR UNKNOWN INDICATION
     Dosage: 1 DF, UNK
     Route: 065
     Dates: start: 20170516
  2. NIVOLUMAB [Suspect]
     Active Substance: NIVOLUMAB
     Indication: METASTATIC MALIGNANT MELANOMA
     Dosage: 1 MG, UNK
     Route: 065
     Dates: start: 20170502

REACTIONS (7)
  - Malnutrition [Unknown]
  - Hypokalaemia [Recovered/Resolved]
  - Weight decreased [Unknown]
  - Vomiting [Unknown]
  - Gastrostomy [Unknown]
  - Failure to thrive [Recovered/Resolved]
  - Stomatitis [Unknown]

NARRATIVE: CASE EVENT DATE: 20170530
